FAERS Safety Report 25160749 (Version 1)
Quarter: 2025Q2

REPORT INFORMATION
  Report Type: Spontaneous
  Country: JP (occurrence: JP)
  Receive Date: 20250404
  Receipt Date: 20250404
  Transmission Date: 20250716
  Serious: Yes (Other)
  Sender: ELI LILLY AND CO
  Company Number: JP-Merck Healthcare KGaA-2025015093

PATIENT
  Age: 80 Year
  Sex: Female

DRUGS (2)
  1. ERBITUX [Suspect]
     Active Substance: CETUXIMAB
     Indication: Gingival cancer
     Dosage: 150 MG/M2, WEEKLY (1/W)
     Route: 041
  2. PACLITAXEL [Concomitant]
     Active Substance: PACLITAXEL
     Indication: Gingival cancer
     Dosage: 48 MG/M2, WEEKLY (1/W)
     Route: 042

REACTIONS (3)
  - Herpes zoster [Recovered/Resolved]
  - Punctate keratitis [Not Recovered/Not Resolved]
  - Off label use [Unknown]

NARRATIVE: CASE EVENT DATE: 20250201
